FAERS Safety Report 10552221 (Version 1)
Quarter: 2014Q4

REPORT INFORMATION
  Report Type: Spontaneous
  Country: IT (occurrence: IT)
  Receive Date: 20141029
  Receipt Date: 20141029
  Transmission Date: 20150529
  Serious: Yes (Hospitalization, Other)
  Sender: FDA-Public Use
  Company Number: IT-ELI_LILLY_AND_COMPANY-IT201410006616

PATIENT
  Age: 72 Year
  Sex: Female
  Weight: 81 kg

DRUGS (14)
  1. MIRTAZAPINE. [Interacting]
     Active Substance: MIRTAZAPINE
     Indication: BIPOLAR DISORDER
     Dosage: 15 MG, QD
     Route: 048
     Dates: start: 20140809, end: 20140819
  2. DICLOFENAC [Interacting]
     Active Substance: DICLOFENAC
     Indication: POLYMYALGIA RHEUMATICA
     Dosage: 100 MG, QD
     Route: 065
     Dates: start: 20140808, end: 20140811
  3. SEACOR [Concomitant]
     Active Substance: OMEGA-3 FATTY ACIDS
     Indication: DYSLIPIDAEMIA
     Dosage: 3 G, UNKNOWN
     Route: 048
  4. GLIBOMET [Concomitant]
     Active Substance: GLYBURIDE\METFORMIN HYDROCHLORIDE
     Indication: TYPE 2 DIABETES MELLITUS
     Dosage: 2 DF, UNKNOWN
     Route: 048
  5. LACIREX [Concomitant]
     Indication: HYPERTENSION
     Dosage: 6 MG, UNKNOWN
     Route: 048
  6. FULCROSUPRA [Concomitant]
     Active Substance: FENOFIBRATE
     Indication: DYSLIPIDAEMIA
     Dosage: 145 MG, UNKNOWN
     Route: 048
  7. METFORALMILLE [Concomitant]
     Active Substance: METFORMIN HYDROCHLORIDE
     Indication: TYPE 2 DIABETES MELLITUS
     Dosage: 1 G, UNKNOWN
     Route: 048
  8. CYMBALTA [Interacting]
     Active Substance: DULOXETINE HYDROCHLORIDE
     Indication: PSYCHOTIC DISORDER
  9. CARBOLITHIUM [Interacting]
     Active Substance: LITHIUM CARBONATE
     Indication: POLYMYALGIA RHEUMATICA
     Dosage: 600 MG, QD
     Route: 048
     Dates: start: 20120101, end: 20140812
  10. DIURESIX                           /01036501/ [Concomitant]
     Dosage: 10 MG, UNKNOWN
     Route: 048
     Dates: end: 20140812
  11. CATAPRESAN                         /00171101/ [Concomitant]
     Active Substance: CLONIDINE
     Indication: HYPERTENSION
     Dosage: 600 UG, UNKNOWN
     Route: 048
  12. ACETYLSALICYLIC ACID [Concomitant]
     Active Substance: ASPIRIN
     Indication: MYOCARDIAL ISCHAEMIA
     Dosage: 100 MG, UNKNOWN
     Route: 048
  13. TARGIN [Concomitant]
     Active Substance: NALOXONE HYDROCHLORIDE\OXYCODONE HYDROCHLORIDE
     Indication: POLYMYALGIA RHEUMATICA
     Dosage: 3 DF, UNKNOWN
     Route: 048
  14. CYMBALTA [Suspect]
     Active Substance: DULOXETINE HYDROCHLORIDE
     Indication: BIPOLAR DISORDER
     Dosage: 60 MG, QD
     Route: 048
     Dates: start: 20140809, end: 20140811

REACTIONS (14)
  - Hyperhidrosis [Recovered/Resolved]
  - Musculoskeletal pain [Recovered/Resolved]
  - Electrocardiogram ST-T change [Not Recovered/Not Resolved]
  - Toxicity to various agents [Recovered/Resolved]
  - Abdominal pain [Recovered/Resolved]
  - Troponin I increased [Recovered/Resolved]
  - Acute coronary syndrome [Recovered/Resolved]
  - Drug interaction [Recovered/Resolved]
  - Asthenia [Recovered/Resolved]
  - Vomiting [Recovered/Resolved]
  - Pain in extremity [Recovered/Resolved]
  - Palpitations [Recovered/Resolved]
  - Clonus [Recovered/Resolved]
  - Mood altered [Recovered/Resolved]

NARRATIVE: CASE EVENT DATE: 20140810
